FAERS Safety Report 4375221-7 (Version None)
Quarter: 2004Q2

REPORT INFORMATION
  Report Type: 
  Country: None (occurrence: None)
  Receive Date: 20040610
  Receipt Date: 20040602
  Transmission Date: 20050107
  Serious: Yes (Hospitalization)
  Sender: FDA-Public Use
  Company Number: PHBS2004SE07230

PATIENT
  Age: 53 Year
  Sex: Female

DRUGS (2)
  1. TEGRETOL [Suspect]
     Indication: GRAND MAL CONVULSION
     Dosage: 600 MG/DAY
     Route: 048
     Dates: start: 19880101
  2. IBUMETIN [Suspect]
     Indication: PYREXIA
     Dosage: 200 MG, UNK
     Route: 048
     Dates: start: 20040117, end: 20040122

REACTIONS (6)
  - CONVULSION [None]
  - COUGH [None]
  - DRUG INTERACTION [None]
  - DRUG LEVEL INCREASED [None]
  - PNEUMONIA [None]
  - PYREXIA [None]
